FAERS Safety Report 6840050-9 (Version None)
Quarter: 2010Q3

REPORT INFORMATION
  Report Type: 
  Country: None (occurrence: None)
  Receive Date: 20100713
  Receipt Date: 20100713
  Transmission Date: 20110219
  Serious: Yes (Life-Threatening, Hospitalization)
  Sender: FDA-Public Use
  Company Number: None

PATIENT
  Sex: Female
  Weight: 74.8435 kg

DRUGS (2)
  1. YAZ [Suspect]
     Indication: HAEMORRHAGE
     Dosage: 3 MG 1 X DAILY AM PO
     Route: 048
     Dates: start: 20030101, end: 20100225
  2. YAZ [Suspect]
     Indication: UTERINE LEIOMYOMA
     Dosage: 3 MG 1 X DAILY AM PO
     Route: 048
     Dates: start: 20030101, end: 20100225

REACTIONS (1)
  - DEEP VEIN THROMBOSIS [None]
